FAERS Safety Report 7796749-3 (Version None)
Quarter: 2011Q4

REPORT INFORMATION
  Report Type: 
  Country: None (occurrence: None)
  Receive Date: 20111005
  Receipt Date: 20110926
  Transmission Date: 20120403
  Serious: Yes (Death, Hospitalization)
  Sender: FDA-Public Use
  Company Number: ES-TEVA-303349ISR

PATIENT
  Age: 65 Year
  Sex: Male

DRUGS (5)
  1. MYCOPHENOLIC ACID [Suspect]
     Indication: CRYOGLOBULINAEMIA
  2. CYCLOPHOSPHAMIDE [Suspect]
     Indication: CRYOGLOBULINAEMIA
  3. METHOTREXATE [Suspect]
     Indication: CRYOGLOBULINAEMIA
  4. CORTICOSTEROIDS [Suspect]
     Indication: CRYOGLOBULINAEMIA
  5. AZATHIOPRINE [Suspect]
     Indication: CRYOGLOBULINAEMIA

REACTIONS (5)
  - SEPSIS [None]
  - SKIN ULCER [None]
  - RESPIRATORY DISTRESS [None]
  - CEREBRAL ISCHAEMIA [None]
  - RENAL FAILURE [None]
